FAERS Safety Report 8080962-4 (Version None)
Quarter: 2012Q1

REPORT INFORMATION
  Report Type: 
  Country: None (occurrence: None)
  Receive Date: 20120130
  Receipt Date: 20120123
  Transmission Date: 20120608
  Serious: Yes (Hospitalization)
  Sender: FDA-Public Use
  Company Number: US-MERCK-1201USA03076

PATIENT

DRUGS (1)
  1. JANUMET [Suspect]
     Route: 048

REACTIONS (1)
  - EYE INFECTION [None]
